FAERS Safety Report 15280044 (Version 1)
Quarter: 2018Q3

REPORT INFORMATION
  Report Type: Spontaneous
  Country: US (occurrence: US)
  Receive Date: 20180730
  Receipt Date: 20180730
  Transmission Date: 20181010
  Serious: Yes (Other)
  Sender: FDA-Public Use
  Company Number: None

PATIENT
  Age: 23 Year
  Sex: Male
  Weight: 60.75 kg

DRUGS (3)
  1. CBD HEMP FLOWER [Suspect]
     Active Substance: CANNABIDIOL
     Indication: ANXIETY
     Dosage: ?          QUANTITY:7 G GRAM(S);?
     Route: 055
     Dates: start: 20180715, end: 20180730
  2. CBD HEMP FLOWER (CBD\THC) [Suspect]
     Active Substance: CANNABIDIOL\DRONABINOL
  3. CBD HEMP FLOWER [Suspect]
     Active Substance: CANNABIDIOL
     Indication: PAIN

REACTIONS (1)
  - Product formulation issue [None]

NARRATIVE: CASE EVENT DATE: 20180715
